FAERS Safety Report 6033867-4 (Version None)
Quarter: 2009Q1

REPORT INFORMATION
  Report Type: 
  Country: None (occurrence: None)
  Receive Date: 20090112
  Receipt Date: 20090106
  Transmission Date: 20090719
  Serious: Yes (Death, Life-Threatening)
  Sender: FDA-Public Use
  Company Number: NL-BRISTOL-MYERS SQUIBB COMPANY-14462931

PATIENT
  Sex: Male

DRUGS (5)
  1. CYCLOPHOSPHAMIDE [Suspect]
     Route: 064
  2. VINCRISTINE SULFATE [Suspect]
     Dosage: CUMULATIVE DOSE OF 10MG.
     Route: 064
  3. ARA-C [Suspect]
     Route: 064
  4. MERCAPTOPURINE [Suspect]
     Route: 064
  5. PREDNISONE TAB [Suspect]
     Route: 064

REACTIONS (2)
  - BONE MARROW FAILURE [None]
  - SEPSIS [None]
